FAERS Safety Report 5123416-7 (Version None)
Quarter: 2006Q4

REPORT INFORMATION
  Report Type: 
  Country: None (occurrence: None)
  Receive Date: 20061005
  Receipt Date: 20060922
  Transmission Date: 20070319
  Serious: Yes (Hospitalization)
  Sender: FDA-Public Use
  Company Number: 2006117169

PATIENT
  Age: 60 Year
  Sex: Male

DRUGS (2)
  1. LYRICA [Suspect]
     Indication: LYME DISEASE
     Dosage: 300 MG (75 MG, 2 IN 1 D)
  2. OXCARBAZEPINE [Concomitant]

REACTIONS (4)
  - HIP SURGERY [None]
  - KNEE OPERATION [None]
  - OEDEMA PERIPHERAL [None]
  - PROSTATIC OPERATION [None]
